FAERS Safety Report 6811475-2 (Version None)
Quarter: 2010Q2

REPORT INFORMATION
  Report Type: 
  Country: None (occurrence: None)
  Receive Date: 20100629
  Receipt Date: 20100629
  Transmission Date: 20101027
  Serious: Yes (Other)
  Sender: FDA-Public Use
  Company Number: None

PATIENT
  Age: 33 Year
  Sex: Female
  Weight: 77.1115 kg

DRUGS (2)
  1. LEVAQUIN [Suspect]
     Indication: UPPER RESPIRATORY TRACT INFECTION
     Dosage: IV INTRACAVERNOUS
     Route: 042
     Dates: start: 20090921, end: 20090925
  2. LEVAQUIN [Suspect]
     Indication: UPPER RESPIRATORY TRACT INFECTION
     Dosage: IV INTRACAVERNOUS
     Route: 042
     Dates: start: 20100110, end: 20100124

REACTIONS (3)
  - ARTHRALGIA [None]
  - CONTUSION [None]
  - JOINT SWELLING [None]
